FAERS Safety Report 17182564 (Version 2)
Quarter: 2020Q3

REPORT INFORMATION
  Report Type: Spontaneous
  Country: SA (occurrence: SA)
  Receive Date: 20191219
  Receipt Date: 20200731
  Transmission Date: 20201102
  Serious: Yes (Other)
  Sender: FDA-Public Use
  Company Number: SA-JNJFOC-20191216660

PATIENT
  Age: 28 Year
  Sex: Female

DRUGS (1)
  1. SIMPONI [Suspect]
     Active Substance: GOLIMUMAB
     Indication: SPONDYLITIS
     Route: 058

REACTIONS (1)
  - Intracranial pressure increased [Unknown]
